FAERS Safety Report 25236106 (Version 1)
Quarter: 2025Q2

REPORT INFORMATION
  Report Type: Spontaneous
  Country: CN (occurrence: CN)
  Receive Date: 20250424
  Receipt Date: 20250424
  Transmission Date: 20250716
  Serious: Yes (Hospitalization)
  Sender: ELI LILLY AND COMPANY
  Company Number: CN-Merck Healthcare KGaA-2025019331

PATIENT
  Age: 53 Year
  Sex: Female

DRUGS (4)
  1. ERBITUX [Suspect]
     Active Substance: CETUXIMAB
     Indication: Nasopharyngeal cancer
     Dosage: 400 MG, WEEKLY (1/W)
     Route: 041
     Dates: start: 20240516, end: 20240523
  2. PACLITAXEL [Suspect]
     Active Substance: PACLITAXEL
     Indication: Nasopharyngeal cancer
     Dosage: UNK UNK, DAILY
     Route: 041
     Dates: start: 20240516, end: 20240516
  3. CAPECITABINE [Suspect]
     Active Substance: CAPECITABINE
     Indication: Nasopharyngeal cancer
     Dosage: 1 G, BID
     Route: 048
     Dates: start: 20240516, end: 20240523
  4. TISLELIZUMAB [Suspect]
     Active Substance: TISLELIZUMAB
     Indication: Nasopharyngeal cancer
     Dosage: UNK UNK, DAILY
     Route: 041
     Dates: start: 20240516, end: 20240516

REACTIONS (1)
  - White blood cell count decreased [Recovering/Resolving]

NARRATIVE: CASE EVENT DATE: 20240520
